FAERS Safety Report 8834785 (Version 1)
Quarter: 2012Q4

REPORT INFORMATION
  Report Type: Spontaneous
  Country: DK (occurrence: None)
  Receive Date: 20121009
  Receipt Date: 20121009
  Transmission Date: 20130627
  Serious: Yes (Hospitalization)
  Sender: FDA-Public Use
  Company Number: 2012MA011903

PATIENT
  Age: 82 Year
  Sex: Female

DRUGS (2)
  1. FEVERALL [Suspect]
     Indication: COSTAL PAIN
     Route: 048
     Dates: start: 20120831, end: 20120831
  2. BENTELAN [Concomitant]

REACTIONS (1)
  - Local swelling [None]
